FAERS Safety Report 16693827 (Version 1)
Quarter: 2019Q3

REPORT INFORMATION
  Report Type: Spontaneous
  Country: US (occurrence: US)
  Receive Date: 20190812
  Receipt Date: 20190812
  Transmission Date: 20191004
  Serious: No
  Sender: FDA-Public Use
  Company Number: US-LANNETT COMPANY, INC.-US-2018LAN000875

PATIENT

DRUGS (2)
  1. ISOSORBIDE MONONITRATE. [Suspect]
     Active Substance: ISOSORBIDE MONONITRATE
     Indication: CARDIAC DISORDER
     Dosage: 60 MG, QD
     Route: 048
     Dates: start: 201708
  2. TICAGRELOR. [Concomitant]
     Active Substance: TICAGRELOR
     Indication: GOUT
     Dosage: 90 MG, UNK

REACTIONS (2)
  - Migraine [Not Recovered/Not Resolved]
  - Intentional dose omission [Unknown]
